FAERS Safety Report 4760235-5 (Version None)
Quarter: 2005Q3

REPORT INFORMATION
  Report Type: 
  Country: None (occurrence: None)
  Receive Date: 20050902
  Receipt Date: 20050823
  Transmission Date: 20060218
  Serious: Yes (Other)
  Sender: FDA-Public Use
  Company Number: JP-JNJFOC-20050803265

PATIENT
  Sex: Female

DRUGS (2)
  1. ITRACONAZOLE [Suspect]
     Indication: ONYCHOMYCOSIS
     Route: 048
  2. PAROXETINE HYDROCHLORIDE [Concomitant]
     Route: 048

REACTIONS (2)
  - ABORTION SPONTANEOUS [None]
  - DRUG EXPOSURE DURING PREGNANCY [None]
